FAERS Safety Report 6185250-9 (Version None)
Quarter: 2009Q2

REPORT INFORMATION
  Report Type: 
  Country: None (occurrence: None)
  Receive Date: 20090507
  Receipt Date: 20090421
  Transmission Date: 20091009
  Serious: Yes (Disabling)
  Sender: FDA-Public Use
  Company Number: 000709

PATIENT
  Sex: Female

DRUGS (6)
  1. VIMPAT [Suspect]
     Dosage: (50 MG (ORAL), (150 MG, 100 - 0 - 50 ORAL), (200 MG ORAL)
     Route: 048
     Dates: start: 20090316, end: 20090101
  2. VIMPAT [Suspect]
     Dosage: (50 MG (ORAL), (150 MG, 100 - 0 - 50 ORAL), (200 MG ORAL)
     Route: 048
     Dates: start: 20090101, end: 20090407
  3. VIMPAT [Suspect]
     Dosage: (50 MG (ORAL), (150 MG, 100 - 0 - 50 ORAL), (200 MG ORAL)
     Route: 048
     Dates: start: 20090408, end: 20090413
  4. VIMPAT [Suspect]
     Dosage: (50 MG (ORAL), (150 MG, 100 - 0 - 50 ORAL), (200 MG ORAL)
     Route: 048
     Dates: start: 20090413
  5. CARBAMAZEPINE [Concomitant]
  6. ZONISAMIDE [Concomitant]

REACTIONS (4)
  - ABDOMINAL PAIN UPPER [None]
  - BALANCE DISORDER [None]
  - NAUSEA [None]
  - NEURALGIA [None]
